FAERS Safety Report 13963380 (Version 1)
Quarter: 2017Q3

REPORT INFORMATION
  Report Type: Spontaneous
  Country: US (occurrence: None)
  Receive Date: 20170913
  Receipt Date: 20170913
  Transmission Date: 20171128
  Serious: Yes (Hospitalization)
  Sender: FDA-Public Use
  Company Number: None

PATIENT
  Age: 81 Year
  Sex: Female
  Weight: 65 kg

DRUGS (1)
  1. MEMANTINE HYDROCHLORIDE. [Suspect]
     Active Substance: MEMANTINE HYDROCHLORIDE
     Dates: end: 20170723

REACTIONS (7)
  - Back pain [None]
  - Agitation [None]
  - Refusal of treatment by patient [None]
  - Condition aggravated [None]
  - Diet refusal [None]
  - Adult failure to thrive [None]
  - Disease progression [None]

NARRATIVE: CASE EVENT DATE: 20170724
